FAERS Safety Report 12434736 (Version 1)
Quarter: 2016Q2

REPORT INFORMATION
  Report Type: Spontaneous
  Country: DE (occurrence: DE)
  Receive Date: 20160603
  Receipt Date: 20160603
  Transmission Date: 20160815
  Serious: Yes (Hospitalization)
  Sender: FDA-Public Use
  Company Number: DE-009507513-1606DEU000918

PATIENT
  Age: 84 Year
  Sex: Male

DRUGS (16)
  1. PIPAMPERONE [Suspect]
     Active Substance: PIPAMPERONE
     Dosage: 20 MG, UNK
     Route: 048
     Dates: start: 20141014
  2. BISOPROLOL [Suspect]
     Active Substance: BISOPROLOL
     Dosage: 2.5 MG, QD
     Route: 048
     Dates: start: 20141025
  3. BISOPROLOL [Suspect]
     Active Substance: BISOPROLOL
     Dosage: UNK
     Route: 048
     Dates: start: 20141016, end: 20141024
  4. ESCITALOPRAM [Concomitant]
     Active Substance: ESCITALOPRAM OXALATE
     Dosage: 5 MG, UNK
  5. MIRTAZAPINE. [Suspect]
     Active Substance: MIRTAZAPINE
     Dosage: 7.5 MG, EVERY DAY
     Route: 048
     Dates: start: 20141013, end: 20141014
  6. MIRTAZAPINE. [Suspect]
     Active Substance: MIRTAZAPINE
     Dosage: UNK
     Route: 048
     Dates: start: 20141015
  7. TORSEMIDE. [Suspect]
     Active Substance: TORSEMIDE
     Dosage: 5 MG, EVERYDAY
     Dates: start: 20141015
  8. BISOPROLOL [Suspect]
     Active Substance: BISOPROLOL
     Dosage: 2.5 MG, UNK
     Route: 048
     Dates: start: 20141015
  9. MIRTAZAPINE. [Suspect]
     Active Substance: MIRTAZAPINE
     Dosage: 15 MG, UNK
     Route: 048
     Dates: start: 20141016
  10. DONEPEZIL. [Concomitant]
     Active Substance: DONEPEZIL
     Dosage: 10 MG, EVERYDAY
  11. AMIODARONE [Concomitant]
     Active Substance: AMIODARONE
     Dosage: 200 MG, EVERYDAY
     Route: 048
  12. MIRTAZAPINE. [Suspect]
     Active Substance: MIRTAZAPINE
     Dosage: 15 MG, QD
     Route: 048
     Dates: start: 20141010, end: 20141012
  13. ATORVASTATIN [Concomitant]
     Active Substance: ATORVASTATIN
     Dosage: 20 MG, UNK
     Route: 048
  14. MIRTAZAPINE. [Suspect]
     Active Substance: MIRTAZAPINE
     Dosage: 7.5 MG, 1 IN 1 DAY
     Route: 048
     Dates: start: 20141008, end: 20141009
  15. PIPAMPERONE [Suspect]
     Active Substance: PIPAMPERONE
     Dosage: 40 UNK, UNK
     Route: 048
     Dates: start: 20141015
  16. PIPAMPERONE [Suspect]
     Active Substance: PIPAMPERONE
     Dosage: 20 UNK, UNK
     Route: 048
     Dates: start: 20141016

REACTIONS (1)
  - Circulatory collapse [Recovered/Resolved]

NARRATIVE: CASE EVENT DATE: 20141015
